FAERS Safety Report 12677840 (Version 1)
Quarter: 2016Q3

REPORT INFORMATION
  Report Type: Spontaneous
  Country: AT (occurrence: AT)
  Receive Date: 20160823
  Receipt Date: 20160823
  Transmission Date: 20161109
  Serious: Yes (Other)
  Sender: FDA-Public Use
  Company Number: AT-PFIZER INC-2016389633

PATIENT
  Age: 73 Year
  Sex: Female
  Weight: 57 kg

DRUGS (9)
  1. GABAPENTIN. [Suspect]
     Active Substance: GABAPENTIN
     Indication: PAIN
     Dosage: UNK
     Dates: start: 201505, end: 201602
  2. TEMESTA [Concomitant]
     Active Substance: LORAZEPAM
     Indication: SLEEP DISORDER
     Dosage: 2.5 MG, DAILY
  3. NOAX [Concomitant]
     Dosage: 50 MG, 2X/DAY
  4. TEMESTA [Concomitant]
     Active Substance: LORAZEPAM
     Dosage: 2 MG, DAILY
  5. CYMBALTA [Suspect]
     Active Substance: DULOXETINE HYDROCHLORIDE
     Dosage: 30 MG, 1X/DAY
     Dates: end: 201602
  6. LYRICA [Suspect]
     Active Substance: PREGABALIN
     Dosage: 75 MG, 2X/DAY
     Dates: end: 201602
  7. EUTHYROX [Concomitant]
     Active Substance: LEVOTHYROXINE SODIUM
     Dosage: 50 UG, UNK
  8. TRAMAL [Concomitant]
     Active Substance: TRAMADOL
     Indication: PAIN
  9. ULCOSAN [Concomitant]
     Dosage: 1-2 DF

REACTIONS (26)
  - Palpitations [Unknown]
  - Pain in extremity [Unknown]
  - Sensory loss [Unknown]
  - Intentional product misuse [Unknown]
  - Headache [Recovered/Resolved]
  - Oedema peripheral [Unknown]
  - Reflux laryngitis [Unknown]
  - Sleep disorder [Unknown]
  - Nausea [Unknown]
  - Vomiting [Recovered/Resolved]
  - Dizziness [Unknown]
  - Pollakiuria [Unknown]
  - Condition aggravated [Unknown]
  - General physical health deterioration [Unknown]
  - Cough [Unknown]
  - Abdominal pain upper [Recovered/Resolved]
  - Fall [Unknown]
  - Muscular weakness [Unknown]
  - Ataxia [Unknown]
  - Arthralgia [Unknown]
  - Blood pressure fluctuation [Unknown]
  - Polyneuropathy [Unknown]
  - Gait disturbance [Unknown]
  - Eructation [Unknown]
  - Depressed mood [Unknown]
  - Erythema [Unknown]

NARRATIVE: CASE EVENT DATE: 20151208
